FAERS Safety Report 5757748-6 (Version None)
Quarter: 2008Q2

REPORT INFORMATION
  Report Type: 
  Country: None (occurrence: None)
  Receive Date: 20080529
  Receipt Date: 20080521
  Transmission Date: 20081010
  Serious: Yes (Death, Hospitalization, Other)
  Sender: FDA-Public Use
  Company Number: 2008JP000131

PATIENT
  Age: 31 Year
  Sex: Female
  Weight: 48 kg

DRUGS (14)
  1. PROGRAF [Suspect]
     Indication: STEM CELL TRANSPLANT
     Dosage: 0.02 MG/KG, /D
     Dates: start: 20050215
  2. METHOTREXATE FORMULATION [Concomitant]
  3. SOLU-MEDROL [Concomitant]
  4. DENOSINE (GANCICLOVIR) INJECTION [Concomitant]
  5. OZEX (TOSUFLOXACIN TOSILATE) [Concomitant]
  6. DIFLUCAN [Concomitant]
  7. SULFAMETHOXAZOLE AND TRIMETHOPRIM [Concomitant]
  8. MEROPEN (MEROPENEM) INJECTION [Concomitant]
  9. MORPHINE HCL ELIXIR [Concomitant]
  10. OMEPRAL [Concomitant]
  11. URSO 250 [Concomitant]
  12. ITIZOLE (ITRACONAZOLE) [Concomitant]
  13. CELLCEPT [Concomitant]
  14. EBASTEL (EBASTINE) [Concomitant]

REACTIONS (11)
  - BLOOD CULTURE POSITIVE [None]
  - BRONCHOPULMONARY ASPERGILLOSIS [None]
  - CYTOMEGALOVIRUS INFECTION [None]
  - DIABETES MELLITUS [None]
  - DIABETIC KETOACIDOSIS [None]
  - ENTEROBACTER INFECTION [None]
  - FEBRILE NEUTROPENIA [None]
  - GENERAL PHYSICAL HEALTH DETERIORATION [None]
  - IMMUNODEFICIENCY [None]
  - RESPIRATORY FAILURE [None]
  - SEPSIS [None]
